FAERS Safety Report 12424904 (Version 1)
Quarter: 2016Q2

REPORT INFORMATION
  Report Type: Spontaneous
  Country: US (occurrence: None)
  Receive Date: 20160531
  Receipt Date: 20160531
  Transmission Date: 20160815
  Serious: No
  Sender: FDA-Public Use
  Company Number: None

PATIENT
  Age: 71 Year
  Sex: Male
  Weight: 79 kg

DRUGS (1)
  1. FERRIC NA GLUCONATE [Suspect]
     Active Substance: SODIUM FERRIC GLUCONATE COMPLEX
     Indication: ANAEMIA
     Dosage: 125 MG PM IV
     Route: 042
     Dates: start: 20160504, end: 20160510

REACTIONS (5)
  - Hepatic steatosis [None]
  - Transaminases increased [None]
  - Condition aggravated [None]
  - Hepatic enzyme increased [None]
  - Hepatocellular injury [None]

NARRATIVE: CASE EVENT DATE: 20160508
